FAERS Safety Report 14018210 (Version 1)
Quarter: 2017Q3

REPORT INFORMATION
  Report Type: Spontaneous
  Country: US (occurrence: US)
  Receive Date: 20170928
  Receipt Date: 20170928
  Transmission Date: 20171128
  Serious: Yes (Other)
  Sender: FDA-Public Use
  Company Number: US-AUROBINDO-AUR-APL-2017-40793

PATIENT
  Age: 71 Year
  Sex: Male

DRUGS (16)
  1. METHYLPREDNISOLONE. [Suspect]
     Active Substance: METHYLPREDNISOLONE
     Indication: IMMUNOSUPPRESSANT DRUG THERAPY
  2. TACROLIMUS. [Suspect]
     Active Substance: TACROLIMUS
     Indication: IMMUNOSUPPRESSANT DRUG THERAPY
     Dosage: MORNING
  3. MYCOPHENOLATE MOFETIL. [Suspect]
     Active Substance: MYCOPHENOLATE MOFETIL
     Indication: IMMUNOSUPPRESSANT DRUG THERAPY
     Dosage: TROUGH GOAL 8E10 NG/ML
  4. VALGANCICLOVIR. [Concomitant]
     Active Substance: VALGANCICLOVIR
     Indication: INFECTION PROPHYLAXIS
  5. PREDNISONE. [Suspect]
     Active Substance: PREDNISONE
     Indication: IMMUNOSUPPRESSANT DRUG THERAPY
  6. TACROLIMUS. [Suspect]
     Active Substance: TACROLIMUS
     Dosage: MORNING
  7. TACROLIMUS. [Suspect]
     Active Substance: TACROLIMUS
     Dosage: EVENING
  8. TACROLIMUS. [Suspect]
     Active Substance: TACROLIMUS
     Dosage: EVENING
  9. TACROLIMUS. [Suspect]
     Active Substance: TACROLIMUS
     Dosage: EVENING
  10. AZATHIOPRINE. [Suspect]
     Active Substance: AZATHIOPRINE
     Indication: GRANULOMATOSIS WITH POLYANGIITIS
  11. ABACIN [Concomitant]
     Active Substance: SULFAMETHOXAZOLE\TRIMETHOPRIM
     Indication: INFECTION PROPHYLAXIS
  12. TACROLIMUS. [Suspect]
     Active Substance: TACROLIMUS
     Dosage: MORNING
  13. TACROLIMUS. [Suspect]
     Active Substance: TACROLIMUS
     Dosage: EVENING
  14. ANTITHYMOCYTE IMMUNOGLOBULIN [Concomitant]
     Active Substance: THYMOCYTE IMMUNE GLOBULIN NOS
     Indication: PRODUCT USED FOR UNKNOWN INDICATION
  15. VALGANCICLOVIR. [Concomitant]
     Active Substance: VALGANCICLOVIR
  16. TACROLIMUS. [Suspect]
     Active Substance: TACROLIMUS
     Dosage: MORNING

REACTIONS (1)
  - Cytomegalovirus viraemia [Recovering/Resolving]
